FAERS Safety Report 9282574 (Version 1)
Quarter: 2013Q2

REPORT INFORMATION
  Report Type: Report from Study
  Country: US (occurrence: US)
  Receive Date: 20130510
  Receipt Date: 20130510
  Transmission Date: 20140414
  Serious: Yes (Hospitalization)
  Sender: FDA-Public Use
  Company Number: US-GE HEALTHCARE MEDICAL DIAGNOSTICS-VISP-PR-1304S-0604

PATIENT
  Age: 65 Year
  Sex: Female
  Weight: 84.4 kg

DRUGS (21)
  1. VISIPAQUE [Suspect]
     Indication: PRODUCT USED FOR UNKNOWN INDICATION
     Route: 013
     Dates: start: 20110425, end: 20110425
  2. VISIPAQUE [Suspect]
     Indication: DIAGNOSTIC PROCEDURE
  3. ISOVUE [Suspect]
     Dates: start: 20110425, end: 20110425
  4. ISOVUE [Suspect]
     Dates: start: 20110426, end: 20110426
  5. ASPIRIN [Concomitant]
     Dates: start: 20101227, end: 20110424
  6. HEPARIN [Concomitant]
  7. CLOPIDOGREL [Concomitant]
  8. METOPROLOL TARTARATE [Concomitant]
     Dates: start: 20101227
  9. ROSUVASTATIN CALCIUM [Concomitant]
     Dates: start: 20080501
  10. FELODIPINE [Concomitant]
     Dates: start: 20080730
  11. FUROSEMIDE [Concomitant]
     Dates: start: 20101022, end: 20110429
  12. HUMULIN N [Concomitant]
     Dates: start: 20061026
  13. SIMETHICONE [Concomitant]
     Dates: start: 20080710
  14. ACETAMINOPHEN [Concomitant]
     Dates: start: 20101227
  15. FEXOFENADINE HYDROCHLORIDE [Concomitant]
     Dates: start: 20110307
  16. POTASSIUM CHLORIDE [Concomitant]
     Dates: start: 20101022, end: 20110429
  17. BUPROPION HYDROCHLORIDE [Concomitant]
     Dates: start: 20110401, end: 20110513
  18. ZOLPIDEM TARTRATE [Concomitant]
     Dates: start: 20110401
  19. METHIMAZOLE [Concomitant]
     Dates: start: 20110411
  20. POTASSIUM IODIDE [Concomitant]
     Dates: start: 20110411, end: 20110429
  21. CHOLESTYRAMINE [Concomitant]
     Dates: start: 20110411

REACTIONS (1)
  - Nephropathy toxic [Recovered/Resolved]
